FAERS Safety Report 18472471 (Version 1)
Quarter: 2020Q4

REPORT INFORMATION
  Report Type: Spontaneous
  Country: US (occurrence: US)
  Receive Date: 20201106
  Receipt Date: 20201106
  Transmission Date: 20210114
  Serious: No
  Sender: FDA-Public Use
  Company Number: US-GLAXOSMITHKLINE-US2020219697

PATIENT
  Sex: Male

DRUGS (1)
  1. VENTOLIN HFA [Suspect]
     Active Substance: ALBUTEROL SULFATE
     Indication: COUGH
     Dosage: 1 PUFF(S)
     Route: 065
     Dates: start: 2019

REACTIONS (4)
  - Expired product administered [Unknown]
  - Off label use [Unknown]
  - Cough [Unknown]
  - Product use in unapproved indication [Unknown]
